FAERS Safety Report 17408860 (Version 1)
Quarter: 2020Q1

REPORT INFORMATION
  Report Type: Spontaneous
  Country: BR (occurrence: BR)
  Receive Date: 20200212
  Receipt Date: 20200212
  Transmission Date: 20200409
  Serious: Yes (Other)
  Sender: FDA-Public Use
  Company Number: BR-PFIZER INC-2020018875

PATIENT
  Sex: Male

DRUGS (2)
  1. VIAGRA [Suspect]
     Active Substance: SILDENAFIL CITRATE
     Dosage: UNK
     Dates: start: 20200105
  2. LABIRIN [Concomitant]
     Active Substance: BETAHISTINE
     Indication: TINNITUS
     Dosage: UNK
     Dates: start: 201911

REACTIONS (3)
  - Deafness [Unknown]
  - Tinnitus [Unknown]
  - Prescription drug used without a prescription [Unknown]
